FAERS Safety Report 16034885 (Version 1)
Quarter: 2019Q1

REPORT INFORMATION
  Report Type: Spontaneous
  Country: US (occurrence: US)
  Receive Date: 20190305
  Receipt Date: 20190305
  Transmission Date: 20190418
  Serious: Yes (Other)
  Sender: FDA-Public Use
  Company Number: US-BAYER-2019-042733

PATIENT
  Age: 72 Year
  Sex: Male
  Weight: 68.93 kg

DRUGS (7)
  1. ALEVE [Suspect]
     Active Substance: NAPROXEN SODIUM
     Indication: PAIN
     Dosage: 1-2 DF, QD
     Route: 048
     Dates: end: 20181212
  2. PRAVASTATIN SODIUM. [Concomitant]
     Active Substance: PRAVASTATIN SODIUM
     Dosage: UNK
  3. VITAMIN D [ERGOCALCIFEROL] [Concomitant]
     Active Substance: ERGOCALCIFEROL
     Dosage: UNK
  4. TYMLOS [Suspect]
     Active Substance: ABALOPARATIDE
     Indication: SPINAL COMPRESSION FRACTURE
  5. TYMLOS [Suspect]
     Active Substance: ABALOPARATIDE
     Indication: OSTEOPOROSIS
     Dosage: 80 ?G, QD
     Route: 058
     Dates: start: 20181210, end: 20181212
  6. FLUTICASONE PROPIONATE. [Concomitant]
     Active Substance: FLUTICASONE PROPIONATE
     Dosage: UNK
  7. CIALIS [Concomitant]
     Active Substance: TADALAFIL
     Dosage: UNK

REACTIONS (4)
  - Tachyarrhythmia [Unknown]
  - Blood pressure increased [Unknown]
  - Flushing [Unknown]
  - Palpitations [Unknown]

NARRATIVE: CASE EVENT DATE: 20181211
